FAERS Safety Report 10195154 (Version 1)
Quarter: 2014Q2

REPORT INFORMATION
  Report Type: Spontaneous
  Country: CN (occurrence: CN)
  Receive Date: 20140526
  Receipt Date: 20140526
  Transmission Date: 20141212
  Serious: Yes (Other)
  Sender: FDA-Public Use
  Company Number: CN-PFIZER INC-2014140252

PATIENT
  Age: 50 Year
  Sex: Female
  Weight: 57 kg

DRUGS (4)
  1. PHARMORUBICIN [Suspect]
     Indication: BREAST CANCER
     Dosage: 70 MG, 1X/DAY
     Route: 041
     Dates: start: 20130314, end: 20130314
  2. PHARMORUBICIN [Suspect]
     Dosage: 80 MG, 1X/DAY
     Route: 041
     Dates: start: 20130315, end: 20130315
  3. CYCLOPHOSPHAMIDE [Suspect]
     Indication: BREAST CANCER
     Dosage: 0.8 G, 1X/DAY
     Route: 041
     Dates: start: 20130314, end: 20130314
  4. FLUOROURACIL [Suspect]
     Indication: BREAST CANCER
     Dosage: 0.75 G, 1X/DAY
     Route: 041
     Dates: start: 20130314, end: 20130314

REACTIONS (4)
  - Agranulocytosis [Recovered/Resolved]
  - White blood cell count decreased [Recovered/Resolved]
  - Diarrhoea [Recovered/Resolved]
  - Asthenia [Recovered/Resolved]
